FAERS Safety Report 23624988 (Version 5)
Quarter: 2025Q4

REPORT INFORMATION
  Report Type: Spontaneous
  Country: EU (occurrence: EU)
  Receive Date: 20240313
  Receipt Date: 20251001
  Transmission Date: 20260118
  Serious: Yes (Death, Hospitalization, Other)
  Sender: SANDOZ
  Company Number: None

PATIENT
  Age: 27 Year
  Sex: Female

DRUGS (33)
  1. LAPINE T-LYMPHOCYTE IMMUNE GLOBULIN [Suspect]
     Active Substance: LAPINE T-LYMPHOCYTE IMMUNE GLOBULIN
     Indication: Bone marrow conditioning regimen
     Dosage: UNK UNK, UNKNOWN FREQ.
     Route: 065
  2. THYMOCYTE IMMUNE GLOBULIN NOS [Suspect]
     Active Substance: THYMOCYTE IMMUNE GLOBULIN NOS
     Indication: Bone marrow conditioning regimen
     Dosage: UNK
     Route: 065
  3. THYMOCYTE IMMUNE GLOBULIN NOS [Suspect]
     Active Substance: THYMOCYTE IMMUNE GLOBULIN NOS
     Indication: Acute myeloid leukaemia
  4. BUSULFAN [Suspect]
     Active Substance: BUSULFAN
     Indication: Acute myeloid leukaemia
     Dosage: UNK
     Route: 065
  5. BUSULFAN [Suspect]
     Active Substance: BUSULFAN
     Indication: Bone marrow conditioning regimen
  6. CYCLOPHOSPHAMIDE [Suspect]
     Active Substance: CYCLOPHOSPHAMIDE
     Indication: Bone marrow conditioning regimen
     Dosage: UNK
     Route: 041
  7. CYCLOPHOSPHAMIDE [Suspect]
     Active Substance: CYCLOPHOSPHAMIDE
     Indication: Acute myeloid leukaemia
     Dosage: UNK
     Route: 042
  8. CYCLOPHOSPHAMIDE [Suspect]
     Active Substance: CYCLOPHOSPHAMIDE
     Dosage: UNK
     Route: 050
  9. FLUDARABINE PHOSPHATE [Suspect]
     Active Substance: FLUDARABINE PHOSPHATE
     Indication: Bone marrow conditioning regimen
     Dosage: UNK
     Route: 065
  10. FLUDARABINE PHOSPHATE [Suspect]
     Active Substance: FLUDARABINE PHOSPHATE
     Indication: Acute myeloid leukaemia
  11. FLUDARABINE [Suspect]
     Active Substance: FLUDARABINE PHOSPHATE
     Indication: Acute myeloid leukaemia
     Dosage: UNK
     Route: 065
  12. FLUDARABINE [Suspect]
     Active Substance: FLUDARABINE PHOSPHATE
     Indication: Bone marrow conditioning regimen
  13. MYCOPHENOLATE MOFETIL [Suspect]
     Active Substance: MYCOPHENOLATE MOFETIL
     Indication: Acute myeloid leukaemia
     Dosage: UNK
     Route: 065
  14. MYCOPHENOLATE MOFETIL [Suspect]
     Active Substance: MYCOPHENOLATE MOFETIL
     Indication: Prophylaxis against graft versus host disease
  15. POSACONAZOLE [Suspect]
     Active Substance: POSACONAZOLE
     Indication: Oral candidiasis
     Dosage: UNK
     Route: 065
  16. TACROLIMUS [Suspect]
     Active Substance: TACROLIMUS
     Indication: Prophylaxis against graft versus host disease
     Dosage: UNK
     Route: 065
  17. TACROLIMUS [Suspect]
     Active Substance: TACROLIMUS
     Indication: Acute myeloid leukaemia
  18. VALGANCICLOVIR [Suspect]
     Active Substance: VALGANCICLOVIR
     Indication: Cytomegalovirus infection reactivation
     Dosage: UNK
     Route: 065
  19. VALGANCICLOVIR [Suspect]
     Active Substance: VALGANCICLOVIR
     Indication: Cytomegalovirus infection
  20. CASPOFUNGIN [Concomitant]
     Active Substance: CASPOFUNGIN
     Indication: Product used for unknown indication
     Dosage: UNK
     Route: 065
  21. CEFTAZIDIME [Concomitant]
     Active Substance: CEFTAZIDIME
     Indication: Product used for unknown indication
     Dosage: UNK
     Route: 065
  22. FOSCAVIR [Concomitant]
     Active Substance: FOSCARNET SODIUM
     Indication: Cytomegalovirus infection reactivation
     Dosage: UNK
     Route: 065
  23. FOSCAVIR [Concomitant]
     Active Substance: FOSCARNET SODIUM
     Indication: Bone marrow conditioning regimen
  24. GRANULOCYTE COLONY-STIMULATING FACTOR NOS [Concomitant]
     Active Substance: GRANULOCYTE COLONY-STIMULATING FACTOR NOS
     Indication: Product used for unknown indication
     Dosage: UNK
     Route: 065
  25. Immune globulin [Concomitant]
     Indication: Supportive care
     Dosage: WEEKLY
     Route: 065
  26. METRONIDAZOLE [Concomitant]
     Active Substance: METRONIDAZOLE
     Indication: Product used for unknown indication
     Dosage: UNK
     Route: 065
  27. PIPERACILLIN SODIUM\TAZOBACTAM SODIUM [Concomitant]
     Active Substance: PIPERACILLIN SODIUM\TAZOBACTAM SODIUM
     Indication: Product used for unknown indication
     Dosage: UNK
     Route: 065
  28. PIPERACILLIN SODIUM\TAZOBACTAM SODIUM [Concomitant]
     Active Substance: PIPERACILLIN SODIUM\TAZOBACTAM SODIUM
     Dosage: UNK UNK, UNKNOWN FREQ.
     Route: 065
  29. PIPERACILLIN SODIUM\TAZOBACTAM SODIUM [Concomitant]
     Active Substance: PIPERACILLIN SODIUM\TAZOBACTAM SODIUM
     Dosage: UNK UNK, UNKNOWN FREQ.
     Route: 065
  30. PIPERACILLIN SODIUM\TAZOBACTAM SODIUM [Concomitant]
     Active Substance: PIPERACILLIN SODIUM\TAZOBACTAM SODIUM
     Dosage: UNK UNK, UNKNOWN FREQ.
     Route: 065
  31. PIPERACILLIN SODIUM\TAZOBACTAM SODIUM [Concomitant]
     Active Substance: PIPERACILLIN SODIUM\TAZOBACTAM SODIUM
     Dosage: UNK UNK, UNKNOWN FREQ.
     Route: 065
  32. URSODIOL [Concomitant]
     Active Substance: URSODIOL
     Indication: Product used for unknown indication
     Dosage: 750 MG,TID
     Route: 065
  33. VANCOMYCIN [Concomitant]
     Active Substance: VANCOMYCIN
     Indication: Product used for unknown indication
     Dosage: UNK
     Route: 065

REACTIONS (33)
  - Pancytopenia [Fatal]
  - Hepatic failure [Fatal]
  - Disseminated intravascular coagulation [Fatal]
  - Cholestasis [Fatal]
  - Hepatic cytolysis [Fatal]
  - Venous haemorrhage [Fatal]
  - Rash [Fatal]
  - Diarrhoea [Fatal]
  - Oedema [Fatal]
  - Hepatomegaly [Fatal]
  - Pyrexia [Fatal]
  - Toxicity to various agents [Fatal]
  - Staphylococcal sepsis [Fatal]
  - Hepatic necrosis [Fatal]
  - Hepatic pain [Fatal]
  - Adenoviral hepatitis [Fatal]
  - Neutropenia [Fatal]
  - Myelosuppression [Fatal]
  - Hepatitis [Fatal]
  - Liver function test abnormal [Fatal]
  - Oral candidiasis [Fatal]
  - Cytomegalovirus infection reactivation [Fatal]
  - Staphylococcal sepsis [Fatal]
  - Haemorrhage [Fatal]
  - Adenovirus infection [Fatal]
  - Infection reactivation [Fatal]
  - Cytomegalovirus infection [Fatal]
  - Hepatitis fulminant [Fatal]
  - Candida infection [Fatal]
  - Venoocclusive liver disease [Unknown]
  - Ascites [Unknown]
  - Pain [Unknown]
  - Serum ferritin increased [Unknown]
